FAERS Safety Report 9419197 (Version 2)
Quarter: 2013Q3

REPORT INFORMATION
  Report Type: Spontaneous
  Country: IN (occurrence: None)
  Receive Date: 20130723
  Receipt Date: 20130807
  Transmission Date: 20140515
  Serious: Yes (Other)
  Sender: FDA-Public Use
  Company Number: AUR-APL-2013-05980

PATIENT
  Age: 46 Year
  Sex: Male

DRUGS (4)
  1. FLUOXETINE [Suspect]
     Indication: BACK PAIN
  2. ONDASETRON HCL [Suspect]
     Indication: NAUSEA
     Dosage: 16 MG (8 MG 2 IN 1 D)
  3. ONDASETRON HCL [Suspect]
     Indication: VOMITING
     Dosage: 16 MG (8 MG 2 IN 1 D)
  4. TRAMADOL AND ACETAMINOPHEN [Suspect]
     Indication: BACK PAIN
     Dosage: 37.5/325

REACTIONS (4)
  - Serotonin syndrome [None]
  - Headache [None]
  - Nausea [None]
  - Vomiting [None]
